FAERS Safety Report 11764053 (Version 1)
Quarter: 2015Q4

REPORT INFORMATION
  Report Type: Spontaneous
  Country: US (occurrence: US)
  Receive Date: 20151120
  Receipt Date: 20151120
  Transmission Date: 20160304
  Serious: No
  Sender: FDA-Public Use
  Company Number: US-ELI_LILLY_AND_COMPANY-US201304005390

PATIENT
  Age: 62 Year
  Sex: Female

DRUGS (3)
  1. FORTEO [Suspect]
     Active Substance: TERIPARATIDE
     Indication: OSTEOPOROSIS
     Dosage: UNK, QD
     Dates: start: 20130317
  2. FORTEO [Suspect]
     Active Substance: TERIPARATIDE
     Dosage: UNK, QD
     Route: 065
  3. VESICARE [Concomitant]
     Active Substance: SOLIFENACIN SUCCINATE
     Indication: MICTURITION URGENCY
     Dosage: UNK, UNKNOWN
     Route: 065
     Dates: end: 20130415

REACTIONS (3)
  - Headache [Not Recovered/Not Resolved]
  - Dysphonia [Unknown]
  - Micturition urgency [Unknown]

NARRATIVE: CASE EVENT DATE: 20130416
